FAERS Safety Report 24451834 (Version 1)
Quarter: 2024Q4

REPORT INFORMATION
  Report Type: Spontaneous
  Country: US (occurrence: US)
  Receive Date: 20241017
  Receipt Date: 20241017
  Transmission Date: 20250115
  Serious: No
  Sender: GALDERMA
  Company Number: US-GALDERMA-US2024013182

PATIENT

DRUGS (1)
  1. DIFFERIN GEL [Suspect]
     Active Substance: ADAPALENE
     Indication: Acne
     Dosage: 1 DOSAGE FORM, QD
     Route: 061
     Dates: start: 20240816, end: 20240819

REACTIONS (3)
  - Application site rash [Not Recovered/Not Resolved]
  - Application site exfoliation [Unknown]
  - Application site pain [Unknown]

NARRATIVE: CASE EVENT DATE: 20240817
